FAERS Safety Report 24310935 (Version 1)
Quarter: 2024Q3

REPORT INFORMATION
  Report Type: Spontaneous
  Country: DE (occurrence: DE)
  Receive Date: 20240912
  Receipt Date: 20240912
  Transmission Date: 20241017
  Serious: Yes (Death, Other)
  Sender: RANBAXY
  Company Number: DE-CADRBFARM-2024328863

PATIENT
  Age: 57 Year
  Sex: Male
  Weight: 68 kg

DRUGS (1)
  1. OLANZAPINE [Suspect]
     Active Substance: OLANZAPINE
     Indication: Schizophrenia
     Dosage: 40 MILLIGRAM, DAILY, 2 X 20MG
     Route: 048
     Dates: start: 2015, end: 2024

REACTIONS (9)
  - Arthralgia [Fatal]
  - Chest pain [Fatal]
  - Peripheral swelling [Fatal]
  - Acute myocardial infarction [Fatal]
  - Tremor [Fatal]
  - Dry mouth [Fatal]
  - Myalgia [Fatal]
  - Prescribed overdose [Unknown]
  - Mobility decreased [Fatal]

NARRATIVE: CASE EVENT DATE: 20160101
